FAERS Safety Report 5249014-2 (Version None)
Quarter: 2007Q1

REPORT INFORMATION
  Report Type: 
  Country: None (occurrence: None)
  Receive Date: 20070228
  Receipt Date: 20060519
  Transmission Date: 20070707
  Serious: No
  Sender: FDA-Public Use
  Company Number: US-GLAXOSMITHKLINE-A0606359A

PATIENT
  Sex: Female

DRUGS (1)
  1. VALTREX [Suspect]
     Indication: IMMUNOSUPPRESSANT DRUG THERAPY
     Route: 048
     Dates: start: 20060401

REACTIONS (2)
  - BLISTER [None]
  - DRUG INEFFECTIVE [None]
